FAERS Safety Report 17297342 (Version 1)
Quarter: 2020Q1

REPORT INFORMATION
  Report Type: Spontaneous
  Country: GB (occurrence: GB)
  Receive Date: 20200121
  Receipt Date: 20200121
  Transmission Date: 20200409
  Serious: Yes (Hospitalization)
  Sender: FDA-Public Use
  Company Number: GB-MYLANLABS-2020M1005447

PATIENT
  Sex: Female

DRUGS (4)
  1. METFORMIN [Suspect]
     Active Substance: METFORMIN HYDROCHLORIDE
     Indication: PRODUCT USED FOR UNKNOWN INDICATION
     Dosage: TODAY I HAVE TAKEN FOUR METFORMIN, TWO IN THE MORNING AND TWO IN THE EVENING
     Route: 048
  2. DIAZEPAM. [Concomitant]
     Active Substance: DIAZEPAM
     Indication: ANXIETY
     Dosage: UNK
     Route: 048
  3. SENOKOT [Concomitant]
     Active Substance: SENNOSIDES
     Indication: CONSTIPATION
     Dosage: UNK
     Route: 048
  4. AMLODIPINE [Concomitant]
     Active Substance: AMLODIPINE BESYLATE
     Indication: PRODUCT USED FOR UNKNOWN INDICATION
     Dosage: I WAS DOUBLED UP ON AMLODIPINE, USED TO TAKE ONE TABLET AND NOW I TAKE TWO A DAY
     Route: 048

REACTIONS (4)
  - Nasopharyngitis [Unknown]
  - Constipation [Unknown]
  - Gastrointestinal carcinoma [Unknown]
  - Anxiety [Unknown]
